FAERS Safety Report 16886536 (Version 1)
Quarter: 2019Q4

REPORT INFORMATION
  Report Type: Spontaneous
  Country: US (occurrence: US)
  Receive Date: 20191004
  Receipt Date: 20191004
  Transmission Date: 20200122
  Serious: No
  Sender: FDA-Public Use
  Company Number: US-IPSEN BIOPHARMACEUTICALS, INC.-2019-18024

PATIENT
  Age: 42 Year
  Sex: Female

DRUGS (3)
  1. RESTYLANE SILK [Suspect]
     Active Substance: HYALURONIC ACID
     Indication: SKIN WRINKLING
  2. RESTYLANE SILK [Suspect]
     Active Substance: HYALURONIC ACID
     Indication: SKIN WRINKLING
     Dosage: 1 ML (0.5 CC INTO GLABELLA AND THE REST INTO PERIORAL AREA)
     Dates: start: 20190923, end: 20190923
  3. DYSPORT [Suspect]
     Active Substance: ABOBOTULINUMTOXINA
     Indication: SKIN WRINKLING
     Dosage: 50 IU (GLABELLA)
     Route: 065
     Dates: start: 20190923, end: 20190923

REACTIONS (10)
  - Discomfort [Recovered/Resolved]
  - Pain [Recovered/Resolved]
  - Pustule [Unknown]
  - Injection site discolouration [Not Recovered/Not Resolved]
  - Contusion [Not Recovered/Not Resolved]
  - Papule [Not Recovered/Not Resolved]
  - Pallor [Recovered/Resolved]
  - Vascular occlusion [Unknown]
  - Skin weeping [Unknown]
  - Tenderness [Not Recovered/Not Resolved]

NARRATIVE: CASE EVENT DATE: 20190923
